FAERS Safety Report 5656872-6 (Version None)
Quarter: 2008Q1

REPORT INFORMATION
  Report Type: 
  Country: None (occurrence: None)
  Receive Date: 20080306
  Receipt Date: 20080306
  Transmission Date: 20080703
  Serious: No
  Sender: FDA-Public Use
  Company Number: None

PATIENT
  Sex: Male

DRUGS (2)
  1. BUPROPION HCL [Suspect]
     Indication: DEPRESSION
     Dosage: 300 MG ONCE DAILY
  2. WELLBUTRIN [Suspect]

REACTIONS (1)
  - DRUG INEFFECTIVE [None]
